FAERS Safety Report 20836968 (Version 1)
Quarter: 2022Q2

REPORT INFORMATION
  Report Type: Spontaneous
  Country: CH (occurrence: CH)
  Receive Date: 20220517
  Receipt Date: 20220517
  Transmission Date: 20220720
  Serious: Yes (Other)
  Sender: FDA-Public Use
  Company Number: None

PATIENT
  Age: 40 Year
  Sex: Male

DRUGS (6)
  1. NOVALGIN (METAMIZOLE SODIUM) [Suspect]
     Active Substance: METAMIZOLE SODIUM
     Indication: Product used for unknown indication
     Route: 048
     Dates: start: 20220227, end: 20220227
  2. RITUXIMAB [Suspect]
     Active Substance: RITUXIMAB
     Indication: Product used for unknown indication
     Route: 041
     Dates: start: 20210705, end: 20211111
  3. ELIQUIS [Concomitant]
     Active Substance: APIXABAN
     Route: 048
     Dates: end: 20220301
  4. MIRCERA [Concomitant]
     Active Substance: METHOXY POLYETHYLENE GLYCOL-EPOETIN BETA
     Dosage: CYCLICAL
  5. TRIATEC (SWITZERLAND) [Concomitant]
     Route: 048
     Dates: start: 20211220
  6. DAFALGAN [Concomitant]
     Active Substance: ACETAMINOPHEN

REACTIONS (1)
  - Agranulocytosis [Recovered/Resolved]

NARRATIVE: CASE EVENT DATE: 20220228
